FAERS Safety Report 5671633-X (Version None)
Quarter: 2008Q1

REPORT INFORMATION
  Report Type: 
  Country: None (occurrence: None)
  Receive Date: 20080313
  Receipt Date: 20080221
  Transmission Date: 20080703
  Serious: Yes (Hospitalization)
  Sender: FDA-Public Use
  Company Number: 200800011

PATIENT
  Age: 79 Year
  Sex: Male
  Weight: 60 kg

DRUGS (1)
  1. MACUGEN [Suspect]
     Indication: MACULAR DEGENERATION
     Dosage: (0.3 MG, Q6W), INTRA-VITREAL
     Dates: start: 20060815, end: 20070605

REACTIONS (1)
  - PANCREATIC CARCINOMA [None]
